FAERS Safety Report 4332110-1 (Version None)
Quarter: 2004Q2

REPORT INFORMATION
  Report Type: 
  Country: None (occurrence: None)
  Receive Date: 20040402
  Receipt Date: 20040402
  Transmission Date: 20050107
  Serious: Yes (Other)
  Sender: FDA-Public Use
  Company Number: None

PATIENT
  Age: 60 Year
  Sex: Male
  Weight: 86.1834 kg

DRUGS (3)
  1. ZOCOR [Suspect]
     Indication: HYPERLIPIDAEMIA
     Dosage: ONE PO DAILY
     Route: 048
     Dates: start: 20021029, end: 20031001
  2. ZOLOFT [Concomitant]
  3. NEXIUM [Concomitant]

REACTIONS (1)
  - URETHRAL DISCHARGE [None]
